FAERS Safety Report 19872854 (Version 1)
Quarter: 2021Q3

REPORT INFORMATION
  Report Type: Spontaneous
  Country: US (occurrence: US)
  Receive Date: 20210922
  Receipt Date: 20210922
  Transmission Date: 20211014
  Serious: No
  Sender: FDA-Public Use
  Company Number: None

PATIENT
  Sex: Female

DRUGS (10)
  1. MILK THISTLE [Concomitant]
     Active Substance: DIETARY SUPPLEMENT\HERBALS\MILK THISTLE
  2. AZITHROMYCIN ANHYDROUS. [Concomitant]
     Active Substance: AZITHROMYCIN ANHYDROUS
  3. TRAMADOL. [Concomitant]
     Active Substance: TRAMADOL
  4. IBRANCE [Suspect]
     Active Substance: PALBOCICLIB
     Indication: BREAST CANCER
     Route: 048
     Dates: start: 20200730
  5. ASTRAGALUS ROOT [Concomitant]
     Active Substance: HERBALS
  6. ANASTROZOLE. [Concomitant]
     Active Substance: ANASTROZOLE
  7. CALCIUM [Concomitant]
     Active Substance: CALCIUM
  8. AMOXICILLIN. [Concomitant]
     Active Substance: AMOXICILLIN
  9. MAXITROL [Concomitant]
     Active Substance: DEXAMETHASONE\NEOMYCIN SULFATE\POLYMYXIN B SULFATE
  10. DAILY?VITAMIN [Concomitant]

REACTIONS (1)
  - Neutrophil count decreased [None]
